FAERS Safety Report 25501216 (Version 1)
Quarter: 2025Q3

REPORT INFORMATION
  Report Type: Spontaneous
  Country: US (occurrence: US)
  Receive Date: 20250701
  Receipt Date: 20250701
  Transmission Date: 20251020
  Serious: No
  Sender: SANOFI AVENTIS
  Company Number: US-SA-2025SA181877

PATIENT
  Sex: Female

DRUGS (1)
  1. DUPIXENT [Suspect]
     Active Substance: DUPILUMAB
     Indication: Dermatitis atopic
     Dosage: 300 MG, QOW
     Route: 058
     Dates: start: 202102

REACTIONS (9)
  - Anxiety [Unknown]
  - Stress [Unknown]
  - Condition aggravated [Unknown]
  - Hand dermatitis [Recovering/Resolving]
  - Weight increased [Unknown]
  - Abdominal distension [Unknown]
  - Injection site inflammation [Unknown]
  - Injection site pain [Unknown]
  - Inappropriate schedule of product administration [Unknown]
